FAERS Safety Report 6331815-0 (Version None)
Quarter: 2009Q3

REPORT INFORMATION
  Report Type: 
  Country: None (occurrence: None)
  Receive Date: 20090826
  Receipt Date: 20090814
  Transmission Date: 20100115
  Serious: Yes (Death, Hospitalization)
  Sender: FDA-Public Use
  Company Number: ADR16642009

PATIENT
  Age: 33 Year
  Sex: Female

DRUGS (7)
  1. ALBUTEROL SULATE [Suspect]
     Dosage: INHALATION USE
     Route: 055
  2. CITALOPRAM HYDROBROMIDE [Concomitant]
  3. FLUTICASONE [Concomitant]
  4. METHADONE HCL [Concomitant]
  5. NICOTINE [Concomitant]
  6. NIFEDIPINE [Concomitant]
  7. PARACETAMOL [Concomitant]

REACTIONS (1)
  - ASTHMA [None]
